FAERS Safety Report 15267214 (Version 1)
Quarter: 2018Q3

REPORT INFORMATION
  Report Type: Spontaneous
  Country: GB (occurrence: GB)
  Receive Date: 20180810
  Receipt Date: 20180810
  Transmission Date: 20181010
  Serious: Yes (Death, Other)
  Sender: FDA-Public Use
  Company Number: GB-TEVA-2018-GB-938778

PATIENT
  Sex: Female

DRUGS (4)
  1. LAMOTRIGINE. [Suspect]
     Active Substance: LAMOTRIGINE
     Route: 065
     Dates: end: 2017
  2. LAMOTRIGINE. [Suspect]
     Active Substance: LAMOTRIGINE
     Indication: EPILEPSY
     Dosage: LARGE INTAKE
     Route: 065
     Dates: start: 20170801, end: 20170801
  3. VIMPAT [Suspect]
     Active Substance: LACOSAMIDE
     Dosage: UNK
     Route: 065
     Dates: end: 2017
  4. VIMPAT [Suspect]
     Active Substance: LACOSAMIDE
     Dosage: LARGE INTAKE
     Route: 065
     Dates: start: 20170801, end: 20170801

REACTIONS (4)
  - Amnesia [Fatal]
  - Intentional overdose [Fatal]
  - Completed suicide [Fatal]
  - Epilepsy [Fatal]

NARRATIVE: CASE EVENT DATE: 20170801
